FAERS Safety Report 9520698 (Version 2)
Quarter: 2013Q3

REPORT INFORMATION
  Report Type: Spontaneous
  Country: JP (occurrence: JP)
  Receive Date: 20130913
  Receipt Date: 20130919
  Transmission Date: 20140515
  Serious: Yes (Death)
  Sender: FDA-Public Use
  Company Number: JP-BRISTOL-MYERS SQUIBB COMPANY-19356344

PATIENT
  Age: 72 Year
  Sex: 0

DRUGS (4)
  1. ELIQUIS [Suspect]
     Indication: THROMBOSIS PROPHYLAXIS
     Dosage: TAB
     Route: 048
     Dates: start: 20130325
  2. CARVEDILOL [Concomitant]
     Dosage: TAB
     Route: 048
  3. SPIRONOLACTONE [Concomitant]
     Dosage: TAB
     Route: 048
  4. FUROSEMIDE [Concomitant]
     Dosage: TAB
     Route: 048

REACTIONS (1)
  - Ischaemic cardiomyopathy [Fatal]
